FAERS Safety Report 6569409-4 (Version None)
Quarter: 2010Q1

REPORT INFORMATION
  Report Type: 
  Country: None (occurrence: None)
  Receive Date: 20100204
  Receipt Date: 20100128
  Transmission Date: 20100710
  Serious: Yes (Hospitalization)
  Sender: FDA-Public Use
  Company Number: FR-BRISTOL-MYERS SQUIBB COMPANY-14946784

PATIENT
  Age: 93 Year
  Sex: Female

DRUGS (7)
  1. IRBESARTAN AND HYDROCHLOROTHIAZIDE [Suspect]
     Dosage: 1 DF =IRBESARTAN 300 MG, HCTZ 12.5 MG TAKEN 1 TAB/D
     Route: 048
     Dates: end: 20090817
  2. KARDEGIC [Concomitant]
  3. CARDENSIEL [Concomitant]
  4. PRAVASTATIN [Concomitant]
  5. PARIET [Concomitant]
  6. VENTOLIN [Concomitant]
  7. SERESTA [Concomitant]

REACTIONS (5)
  - EPILEPSY [None]
  - FALL [None]
  - GENERAL PHYSICAL HEALTH DETERIORATION [None]
  - HYPOKALAEMIA [None]
  - HYPONATRAEMIA [None]
